FAERS Safety Report 4826882-7 (Version None)
Quarter: 2005Q4

REPORT INFORMATION
  Report Type: 
  Country: None (occurrence: None)
  Receive Date: 20051114
  Receipt Date: 20051102
  Transmission Date: 20060501
  Serious: Yes (Life-Threatening)
  Sender: FDA-Public Use
  Company Number: IT-BOEHRINGER INGELHEIM PHARMACEUTICALS, INC.-2005-DE-04775GL

PATIENT
  Sex: Female

DRUGS (3)
  1. TELMISARTAN [Suspect]
     Indication: HYPERTENSION
     Route: 048
     Dates: start: 20051001, end: 20051021
  2. ESOMEPRAZOLE [Concomitant]
     Dates: start: 20050901, end: 20051021
  3. MOXONIDINE [Concomitant]
     Dates: start: 20050301, end: 20051021

REACTIONS (7)
  - ANAPHYLACTIC REACTION [None]
  - DYSPNOEA [None]
  - LACRIMATION INCREASED [None]
  - LARYNGEAL OEDEMA [None]
  - RASH [None]
  - SNEEZING [None]
  - TOXIC SKIN ERUPTION [None]
